FAERS Safety Report 16660297 (Version 1)
Quarter: 2019Q3

REPORT INFORMATION
  Report Type: Spontaneous
  Country: US (occurrence: US)
  Receive Date: 20190802
  Receipt Date: 20190802
  Transmission Date: 20191004
  Serious: Yes (Hospitalization)
  Sender: FDA-Public Use
  Company Number: US-ASTRAZENECA-2019SF09532

PATIENT
  Age: 20963 Day
  Sex: Female
  Weight: 86.2 kg

DRUGS (1)
  1. BYDUREON [Suspect]
     Active Substance: EXENATIDE
     Indication: TYPE 2 DIABETES MELLITUS
     Route: 058
     Dates: start: 20190527, end: 20190621

REACTIONS (12)
  - Urticaria [Recovered/Resolved]
  - Erythema [Recovered/Resolved]
  - Oropharyngeal discomfort [Recovered/Resolved]
  - Nausea [Recovered/Resolved]
  - Swelling [Recovered/Resolved]
  - Mouth swelling [Recovered/Resolved]
  - Diarrhoea [Not Recovered/Not Resolved]
  - Oral discomfort [Recovered/Resolved]
  - Eye irritation [Recovered/Resolved]
  - Vomiting [Recovered/Resolved]
  - Muscular weakness [Recovering/Resolving]
  - Vocal cord paralysis [Unknown]

NARRATIVE: CASE EVENT DATE: 20190527
